FAERS Safety Report 14007032 (Version 1)
Quarter: 2017Q3

REPORT INFORMATION
  Report Type: Report from Study
  Country: None (occurrence: BR)
  Receive Date: 20170925
  Receipt Date: 20170925
  Transmission Date: 20171128
  Serious: Yes (Death)
  Sender: FDA-Public Use
  Company Number: BR-ABBVIE-17K-020-2110555-00

PATIENT
  Age: 81 Year
  Sex: Male

DRUGS (1)
  1. HUMIRA [Suspect]
     Active Substance: ADALIMUMAB
     Indication: RHEUMATOID ARTHRITIS
     Route: 058
     Dates: start: 20160101

REACTIONS (4)
  - Hepatic neoplasm [Fatal]
  - Malaise [Unknown]
  - Cerebrovascular accident [Fatal]
  - Pancreatic neoplasm [Fatal]

NARRATIVE: CASE EVENT DATE: 201707
